FAERS Safety Report 6124003-4 (Version None)
Quarter: 2009Q1

REPORT INFORMATION
  Report Type: 
  Country: None (occurrence: None)
  Receive Date: 20090319
  Receipt Date: 20090227
  Transmission Date: 20090719
  Serious: Yes (Congenital Anomaly)
  Sender: FDA-Public Use
  Company Number: TR-NOVOPROD-284869

PATIENT

DRUGS (2)
  1. NOVORAPID [Suspect]
     Indication: TYPE 2 DIABETES MELLITUS
     Route: 064
  2. NOVOLOG MIX 70/30 [Suspect]
     Indication: TYPE 2 DIABETES MELLITUS

REACTIONS (5)
  - CONGENITAL CORONARY ARTERY MALFORMATION [None]
  - ENZYME ABNORMALITY [None]
  - GENITALIA EXTERNAL AMBIGUOUS [None]
  - HEMIVERTEBRA [None]
  - RENAL FUSION ANOMALY [None]
